FAERS Safety Report 6076182-5 (Version None)
Quarter: 2009Q1

REPORT INFORMATION
  Report Type: 
  Country: None (occurrence: None)
  Receive Date: 20090212
  Receipt Date: 20090202
  Transmission Date: 20090719
  Serious: Yes (Life-Threatening, Hospitalization, Other)
  Sender: FDA-Public Use
  Company Number: US-ABBOTT-05P-163-0310759-00

PATIENT
  Sex: Female
  Weight: 14.755 kg

DRUGS (8)
  1. OMNICEF [Suspect]
     Indication: OTITIS MEDIA ACUTE
     Route: 048
     Dates: start: 20050716, end: 20050726
  2. OMNICEF [Suspect]
     Indication: PYREXIA
  3. OMNICEF [Suspect]
     Indication: PHARYNGITIS
  4. TYLENOL [Concomitant]
     Indication: DRUG USE FOR UNKNOWN INDICATION
  5. ZITHROMAX [Concomitant]
     Indication: EAR INFECTION
     Dates: start: 20050728
  6. ZYRTEC [Concomitant]
     Indication: RHINITIS ALLERGIC
     Dates: start: 20050728
  7. OCUFLOX [Concomitant]
     Indication: CONJUNCTIVITIS
     Dates: start: 20050728
  8. NEOSPORIN [Concomitant]
     Indication: DRUG USE FOR UNKNOWN INDICATION

REACTIONS (47)
  - ALOPECIA [None]
  - ANAPHYLACTIC REACTION [None]
  - ASTHENIA [None]
  - BLINDNESS [None]
  - BRONCHITIS [None]
  - CHEST PAIN [None]
  - CHRONIC SINUSITIS [None]
  - CONJUNCTIVITIS ALLERGIC [None]
  - CORNEAL DISORDER [None]
  - CORNEAL NEOVASCULARISATION [None]
  - CORNEAL OPACITY [None]
  - COUGH [None]
  - DEAFNESS [None]
  - DENTAL CARIES [None]
  - DERMATITIS CONTACT [None]
  - DRY EYE [None]
  - DYSPHAGIA [None]
  - EAR CANAL STENOSIS [None]
  - EYE DISORDER [None]
  - EYELID FUNCTION DISORDER [None]
  - EYELID OEDEMA [None]
  - EYELID PTOSIS [None]
  - FINE MOTOR DELAY [None]
  - GRIP STRENGTH DECREASED [None]
  - INFECTION [None]
  - IRRITABILITY [None]
  - LARYNGEAL ERYTHEMA [None]
  - LARYNGEAL OEDEMA [None]
  - LUNG INFECTION PSEUDOMONAL [None]
  - MIDDLE EAR EFFUSION [None]
  - NECROTISING COLITIS [None]
  - OESOPHAGEAL STENOSIS [None]
  - OTITIS EXTERNA [None]
  - OTITIS MEDIA CHRONIC [None]
  - OTORRHOEA [None]
  - PHOTOPHOBIA [None]
  - PYREXIA [None]
  - RESPIRATORY DISTRESS [None]
  - RESPIRATORY FAILURE [None]
  - SCAR [None]
  - SINUS DISORDER [None]
  - SINUSITIS [None]
  - STAPHYLOCOCCAL INFECTION [None]
  - STEVENS-JOHNSON SYNDROME [None]
  - SYMBLEPHARON [None]
  - TRICHIASIS [None]
  - UNEVALUABLE EVENT [None]
